FAERS Safety Report 8343198-5 (Version None)
Quarter: 2012Q2

REPORT INFORMATION
  Report Type: 
  Country: None (occurrence: None)
  Receive Date: 20120508
  Receipt Date: 20120506
  Transmission Date: 20120825
  Serious: Yes (Other)
  Sender: FDA-Public Use
  Company Number: US-PFIZER INC-2012110682

PATIENT
  Sex: Female

DRUGS (2)
  1. CHANTIX [Suspect]
     Indication: SMOKING CESSATION THERAPY
     Dosage: UNK
     Dates: start: 20100601, end: 20100101
  2. CHANTIX [Suspect]
     Dosage: UNK
     Dates: start: 20120428

REACTIONS (2)
  - HYPERSENSITIVITY [None]
  - ARTHROPATHY [None]
